FAERS Safety Report 8540536-5 (Version None)
Quarter: 2012Q3

REPORT INFORMATION
  Report Type: 
  Country: None (occurrence: None)
  Receive Date: 20120726
  Receipt Date: 20120328
  Transmission Date: 20120928
  Serious: No
  Sender: FDA-Public Use
  Company Number: US-ASTRAZENECA-2011SE46374

PATIENT
  Age: 32 Year
  Sex: Female
  Weight: 61.2 kg

DRUGS (5)
  1. KLONAZAPAM [Concomitant]
  2. SEROQUEL [Suspect]
     Indication: BIPOLAR I DISORDER
     Route: 048
     Dates: start: 20060101, end: 20110701
  3. PROZAC [Concomitant]
     Indication: BIPOLAR DISORDER
  4. LAMICTAL [Concomitant]
     Indication: BIPOLAR DISORDER
  5. SEROQUEL [Suspect]
     Route: 048

REACTIONS (7)
  - NAUSEA [None]
  - INSOMNIA [None]
  - TREMOR [None]
  - DRUG WITHDRAWAL SYNDROME [None]
  - MALAISE [None]
  - DRUG DOSE OMISSION [None]
  - ABDOMINAL DISCOMFORT [None]
